FAERS Safety Report 20709613 (Version 1)
Quarter: 2022Q2

REPORT INFORMATION
  Report Type: Spontaneous
  Country: US (occurrence: None)
  Receive Date: 20220413
  Receipt Date: 20220413
  Transmission Date: 20220721
  Serious: Yes (Other)
  Sender: FDA-Public Use
  Company Number: None

PATIENT
  Age: 75 Year
  Sex: Female
  Weight: 66.6 kg

DRUGS (11)
  1. BIMATOPROST [Suspect]
     Active Substance: BIMATOPROST
     Indication: Growth of eyelashes
     Dosage: FREQUENCY : AT BEDTIME;?
     Route: 061
     Dates: start: 20220303, end: 20220411
  2. ROGAINE [Concomitant]
     Active Substance: MINOXIDIL
  3. WIXELA INHUB [Concomitant]
     Active Substance: FLUTICASONE PROPIONATE\SALMETEROL XINAFOATE
  4. Frovatriptin [Concomitant]
  5. EMGALITY [Concomitant]
     Active Substance: GALCANEZUMAB-GNLM
  6. B2 [Concomitant]
  7. BOSWELLIA [Concomitant]
  8. COENZYME Q10 [Concomitant]
     Active Substance: DIETARY SUPPLEMENT\UBIDECARENONE
  9. HERBALS\TURMERIC [Concomitant]
     Active Substance: HERBALS\TURMERIC
  10. GINGER [Concomitant]
     Active Substance: GINGER
  11. MAGNESIUM [Concomitant]
     Active Substance: MAGNESIUM

REACTIONS (4)
  - Blister [None]
  - Injury of conjunctiva [None]
  - Periorbital oedema [None]
  - Skin discolouration [None]

NARRATIVE: CASE EVENT DATE: 20220412
